FAERS Safety Report 7320185-7 (Version None)
Quarter: 2011Q1

REPORT INFORMATION
  Report Type: 
  Country: None (occurrence: None)
  Receive Date: 20110228
  Receipt Date: 20110216
  Transmission Date: 20110831
  Serious: Yes (Hospitalization)
  Sender: FDA-Public Use
  Company Number: PHHY2010US78928

PATIENT
  Sex: Male
  Weight: 62.6 kg

DRUGS (12)
  1. CALCIUM [Concomitant]
  2. TOPROL-XL [Concomitant]
  3. MULTI-VITAMIN [Concomitant]
  4. EXJADE [Suspect]
     Dosage: UNK
  5. VIDAZA [Concomitant]
  6. FOLIC ACID [Concomitant]
  7. NEUPOGEN [Concomitant]
  8. OMEPRAZOLE [Concomitant]
  9. PROCRIT [Concomitant]
  10. EXJADE [Suspect]
     Dosage: 1250MG DAILY
     Route: 048
  11. METFORMIN [Concomitant]
  12. EXJADE [Suspect]
     Indication: MYELODYSPLASTIC SYNDROME
     Dosage: 1250MG DAILY
     Route: 048
     Dates: start: 20101028

REACTIONS (5)
  - CHEST DISCOMFORT [None]
  - FATIGUE [None]
  - ASTHENIA [None]
  - DIARRHOEA [None]
  - PAIN [None]
